FAERS Safety Report 8970559 (Version 1)
Quarter: 2012Q4

REPORT INFORMATION
  Report Type: 
  Country: US (occurrence: US)
  Receive Date: 20121218
  Receipt Date: 20121218
  Transmission Date: 20130627
  Serious: Yes (Hospitalization)
  Sender: FDA-Public Use
  Company Number: US-BRISTOL-MYERS SQUIBB COMPANY-16507147

PATIENT
  Age: 61 Year
  Sex: Female

DRUGS (4)
  1. ABILIFY [Suspect]
     Indication: DEPRESSION
  2. LAMICTAL [Concomitant]
  3. CYMBALTA [Concomitant]
  4. MULTIVITAMIN [Concomitant]

REACTIONS (3)
  - Fall [Unknown]
  - Multiple fractures [Unknown]
  - Tremor [Recovering/Resolving]
